FAERS Safety Report 9547082 (Version 1)
Quarter: 2013Q3

REPORT INFORMATION
  Report Type: Spontaneous
  Country: IL (occurrence: IL)
  Receive Date: 20130924
  Receipt Date: 20130924
  Transmission Date: 20140515
  Serious: Yes (Other)
  Sender: FDA-Public Use
  Company Number: PHHY2013IL105629

PATIENT
  Age: 34 Year
  Sex: Female

DRUGS (2)
  1. CARBAMAZEPINE [Suspect]
     Indication: EYE MOVEMENT DISORDER
     Dosage: 400 MG, DAILY
     Route: 048
  2. CARBAMAZEPINE [Suspect]
     Indication: OFF LABEL USE

REACTIONS (3)
  - Photophobia [Unknown]
  - Lacrimation increased [Unknown]
  - Eye movement disorder [Unknown]
